FAERS Safety Report 4350041-8 (Version None)
Quarter: 2004Q2

REPORT INFORMATION
  Report Type: 
  Country: None (occurrence: None)
  Receive Date: 20040429
  Receipt Date: 20040420
  Transmission Date: 20050107
  Serious: Yes (Hospitalization)
  Sender: FDA-Public Use
  Company Number: PHNU2004DE01565

PATIENT
  Age: 55 Year
  Sex: Female

DRUGS (12)
  1. CLOZAPINE [Suspect]
     Indication: SCHIZOPHRENIA
     Dosage: UP TO 225 MG/DAY
     Route: 048
     Dates: start: 19971201, end: 19980101
  2. CLOZAPINE [Suspect]
     Dosage: BETWEEN 100 AND 375 MG/DAY
     Route: 048
     Dates: start: 20000517, end: 20000616
  3. CLOZAPINE [Suspect]
     Dosage: UP TO 400MG/DAY
     Route: 048
     Dates: start: 20000617
  4. CLOZAPINE [Suspect]
     Dosage: 300MG/DAY
     Route: 048
     Dates: start: 20000601
  5. TRUXAL [Suspect]
     Dosage: 100MG/DAY
     Route: 048
     Dates: start: 20000615, end: 20000616
  6. TRUXAL [Suspect]
     Dosage: 50 TO 60MG/DAY
     Route: 048
     Dates: start: 20000617, end: 20000622
  7. TRUXAL [Suspect]
     Dosage: 40MG/DAY
     Route: 048
     Dates: start: 20000623, end: 20000626
  8. HALDOL [Suspect]
     Dosage: 2MG/DAY
     Route: 048
     Dates: start: 20000424
  9. DELIX [Suspect]
     Dosage: 5MG/DAY
     Route: 048
     Dates: end: 20000622
  10. DELIX [Suspect]
     Dosage: 3.75MG/DAY
     Route: 048
     Dates: start: 20000623, end: 20000626
  11. DYTIDE H [Suspect]
     Dosage: .5 DF, QD
     Route: 048
     Dates: end: 20000627
  12. LASIX [Suspect]
     Dosage: 40 MG, QD
     Route: 048
     Dates: end: 20000627

REACTIONS (10)
  - BLOOD PRESSURE DECREASED [None]
  - CIRCULATORY COLLAPSE [None]
  - CONTUSION [None]
  - DIZZINESS [None]
  - DIZZINESS POSTURAL [None]
  - DRUG INTERACTION [None]
  - ECHOCARDIOGRAM ABNORMAL [None]
  - FALL [None]
  - SYNCOPE [None]
  - VENTRICULAR HYPERTROPHY [None]
